FAERS Safety Report 10802291 (Version 1)
Quarter: 2015Q1

REPORT INFORMATION
  Report Type: Spontaneous
  Country: FR (occurrence: FR)
  Receive Date: 20150217
  Receipt Date: 20150217
  Transmission Date: 20150721
  Serious: Yes (Other)
  Sender: FDA-Public Use
  Company Number: FR-PFIZER INC-2015059098

PATIENT
  Age: 69 Year
  Sex: Female

DRUGS (3)
  1. ACUPAN [Suspect]
     Active Substance: NEFOPAM HYDROCHLORIDE
     Dosage: 2 DF, DAILY
     Route: 042
     Dates: start: 20140922, end: 20140925
  2. EUPANTOL [Suspect]
     Active Substance: PANTOPRAZOLE SODIUM
     Dosage: 80 MG, DAILY
     Route: 065
     Dates: start: 20140923, end: 20140925
  3. EUPANTOL [Suspect]
     Active Substance: PANTOPRAZOLE SODIUM
     Dosage: 200 MG, DAILY
     Route: 065
     Dates: start: 20140922, end: 20140922

REACTIONS (5)
  - Agitation [Recovered/Resolved]
  - Nightmare [Recovered/Resolved]
  - Overdose [Unknown]
  - Off label use [Unknown]
  - Confusional state [Recovered/Resolved]

NARRATIVE: CASE EVENT DATE: 20140925
